FAERS Safety Report 10089708 (Version 5)
Quarter: 2014Q4

REPORT INFORMATION
  Report Type: Report from Study
  Country: CA (occurrence: CA)
  Receive Date: 20140421
  Receipt Date: 20141028
  Transmission Date: 20150528
  Serious: Yes (Other)
  Sender: FDA-Public Use
  Company Number: CA-JNJFOC-20140411633

PATIENT
  Age: 23 Year
  Sex: Female
  Weight: 55.34 kg

DRUGS (3)
  1. REMICADE [Suspect]
     Active Substance: INFLIXIMAB
     Indication: ANKYLOSING SPONDYLITIS
     Route: 042
     Dates: start: 201306, end: 201404
  2. BIRTH CONTROL PILL [Concomitant]
     Route: 065
  3. REMICADE [Suspect]
     Active Substance: INFLIXIMAB
     Indication: CROHN^S DISEASE
     Route: 042
     Dates: start: 201306, end: 201404

REACTIONS (6)
  - Pharyngeal oedema [Unknown]
  - Lupus-like syndrome [Unknown]
  - Antibody test positive [Unknown]
  - Peripheral swelling [Unknown]
  - Haemorrhage subcutaneous [Unknown]
  - Hypersensitivity [Unknown]

NARRATIVE: CASE EVENT DATE: 2014
